FAERS Safety Report 9578522 (Version 1)
Quarter: 2013Q4

REPORT INFORMATION
  Report Type: Spontaneous
  Country: US (occurrence: US)
  Receive Date: 20131001
  Receipt Date: 20131001
  Transmission Date: 20140711
  Serious: No
  Sender: FDA-Public Use
  Company Number: US-AMGEN-USASP2013013435

PATIENT
  Sex: Male
  Weight: 74.83 kg

DRUGS (6)
  1. ENBREL [Suspect]
     Indication: RHEUMATOID ARTHRITIS
     Dosage: 25 MG, TWICE A WEEK
     Route: 058
  2. VITAMIN D                          /00107901/ [Concomitant]
     Dosage: 1000 UNIT, UNK
  3. VICODIN ES [Concomitant]
     Dosage: 7.5-300
  4. PREDNISONE [Concomitant]
     Dosage: 1 MG, UNK
  5. FOSAMAX [Concomitant]
     Dosage: 10 MG, UNK
  6. DIFLUNISAL [Concomitant]
     Dosage: 250 MG, UNK

REACTIONS (1)
  - Injection site reaction [Unknown]
